FAERS Safety Report 13385088 (Version 1)
Quarter: 2017Q1

REPORT INFORMATION
  Report Type: Spontaneous
  Country: US (occurrence: US)
  Receive Date: 20170330
  Receipt Date: 20170330
  Transmission Date: 20170429
  Serious: Yes (Life-Threatening, Disabling)
  Sender: FDA-Public Use
  Company Number: None

PATIENT
  Age: 27 Year
  Sex: Female
  Weight: 58.5 kg

DRUGS (3)
  1. INVEGA [Suspect]
     Active Substance: PALIPERIDONE
     Indication: BIPOLAR DISORDER
     Dosage: ?          OTHER FREQUENCY:ONE SHOT A MONTH.;?
     Route: 058
     Dates: start: 20170327
  2. CORTISIN [Concomitant]
  3. AMBILIFY [Concomitant]

REACTIONS (3)
  - Blood urine present [None]
  - Tremor [None]
  - Hypersensitivity [None]

NARRATIVE: CASE EVENT DATE: 20170329
